FAERS Safety Report 9298119 (Version 1)
Quarter: 2013Q2

REPORT INFORMATION
  Report Type: Spontaneous
  Country: US (occurrence: US)
  Receive Date: 20130520
  Receipt Date: 20130520
  Transmission Date: 20140414
  Serious: No
  Sender: FDA-Public Use
  Company Number: US-BAYER-2013-061910

PATIENT
  Age: 32 Year
  Sex: Female
  Weight: 63.49 kg

DRUGS (4)
  1. BETASERON [Suspect]
     Dosage: 0.25 MG, UNK
     Route: 058
  2. VITAMIN D [Concomitant]
     Dosage: 2000 U, UNK
  3. VITAMIN C [Concomitant]
     Dosage: 500 MG, UNK
  4. MULTIVITAMIN [Concomitant]

REACTIONS (2)
  - Skin induration [Recovering/Resolving]
  - Abdominal pain lower [Recovering/Resolving]
